FAERS Safety Report 6955730-4 (Version None)
Quarter: 2010Q3

REPORT INFORMATION
  Report Type: 
  Country: None (occurrence: None)
  Receive Date: 20100830
  Receipt Date: 20100726
  Transmission Date: 20110219
  Serious: Yes (Other)
  Sender: FDA-Public Use
  Company Number: US-AMGEN-QUU410929

PATIENT
  Sex: Female
  Weight: 83.5 kg

DRUGS (3)
  1. NPLATE [Suspect]
     Indication: IDIOPATHIC THROMBOCYTOPENIC PURPURA
     Route: 058
     Dates: start: 20090803, end: 20090924
  2. PROMACTA [Concomitant]
  3. CORTICOSTEROIDS [Concomitant]

REACTIONS (1)
  - DRUG INEFFECTIVE [None]
